FAERS Safety Report 7531017-6 (Version None)
Quarter: 2011Q2

REPORT INFORMATION
  Report Type: 
  Country: None (occurrence: None)
  Receive Date: 20110608
  Receipt Date: 20091122
  Transmission Date: 20111010
  Serious: Yes (Death, Other)
  Sender: FDA-Public Use
  Company Number: US-BAYER-200940455NA

PATIENT
  Age: 75 Year
  Sex: Female
  Weight: 81.633 kg

DRUGS (19)
  1. DIGOXIN [Concomitant]
     Dosage: 0.25 MCG/24HR, UNK
     Route: 048
  2. HEPARIN [Concomitant]
     Dosage: 5000 UNITS, THEN 32,000 UITS
     Route: 042
     Dates: start: 20040908
  3. ZINACEF [Concomitant]
     Dosage: 1.5 G, UNK
     Route: 042
     Dates: start: 20040908
  4. TRASYLOL [Suspect]
     Indication: CORONARY ARTERY BYPASS
     Dosage: UNK
     Route: 042
     Dates: start: 20040908, end: 20040908
  5. MAXZIDE [Concomitant]
     Dosage: 25MG SIX DAYS A WEEK
     Route: 048
  6. ATENOLOL [Concomitant]
     Dosage: 100 MG, HS
     Route: 048
  7. ZANTAC [Concomitant]
     Dosage: 150 MG, BID
     Route: 048
  8. DOPAMINE HCL [Concomitant]
     Dosage: 5MCG/KG/MIN
     Route: 042
     Dates: start: 20040908
  9. PROTAMINE SULFATE [Concomitant]
     Dosage: 320MG AND 50MG
     Route: 042
     Dates: start: 20040908
  10. ASPIRIN [Concomitant]
     Dosage: 325 MG, QD
     Route: 048
  11. ZOCOR [Concomitant]
     Dosage: EACH NIGHT
     Route: 048
  12. NITROGLYCERIN [Concomitant]
     Dosage: UNK
     Route: 042
     Dates: start: 20040908
  13. VANCOMYCIN [Concomitant]
     Dosage: 1 G, UNK
     Route: 042
     Dates: start: 20040908
  14. TRASYLOL [Suspect]
     Dosage: 1CC
     Route: 042
     Dates: start: 20040908, end: 20040908
  15. ZOFRAN [Concomitant]
     Dosage: 4 MG, UNK
     Route: 042
     Dates: start: 20040908
  16. TRASYLOL [Suspect]
     Dosage: 100 ML PUMP PRIME
     Route: 042
     Dates: start: 20040908, end: 20040908
  17. NORVASC [Concomitant]
     Dosage: 5 MG, QD
     Route: 048
  18. VERSED [Concomitant]
     Dosage: UNK
     Route: 042
     Dates: start: 20040908
  19. NEOSYNEPHRINE [Concomitant]
     Dosage: UNK
     Route: 042
     Dates: start: 20040908

REACTIONS (13)
  - MULTI-ORGAN FAILURE [None]
  - RENAL IMPAIRMENT [None]
  - FEAR [None]
  - UNEVALUABLE EVENT [None]
  - INJURY [None]
  - STRESS [None]
  - PAIN [None]
  - RENAL INJURY [None]
  - RENAL FAILURE [None]
  - EMOTIONAL DISORDER [None]
  - ANXIETY [None]
  - ANHEDONIA [None]
  - DEATH [None]
